FAERS Safety Report 4468339-1 (Version None)
Quarter: 2004Q4

REPORT INFORMATION
  Report Type: 
  Country: None (occurrence: None)
  Receive Date: 20041007
  Receipt Date: 20041001
  Transmission Date: 20050328
  Serious: Yes (Hospitalization)
  Sender: FDA-Public Use
  Company Number: NO-MERCK-0410NOR00003

PATIENT
  Age: 77 Year
  Sex: Female

DRUGS (10)
  1. ACETAMINOPHEN [Concomitant]
     Route: 065
  2. BENSERAZIDE HYDROCHLORIDE AND LEVODOPA [Concomitant]
     Route: 065
  3. ESTRIOL [Concomitant]
     Route: 065
  4. FOLIC ACID [Concomitant]
     Route: 065
  5. LEVOTHYROXINE SODIUM [Concomitant]
     Route: 065
  6. METHENAMINE HIPPURATE [Concomitant]
     Route: 065
  7. MIRTAZAPINE [Concomitant]
     Route: 065
  8. OXAZEPAM [Concomitant]
     Route: 065
  9. ROFECOXIB [Suspect]
     Indication: PAIN
     Route: 048
     Dates: start: 20040831, end: 20040913
  10. ZOLPIDEM TARTRATE [Concomitant]
     Route: 065

REACTIONS (6)
  - ANAEMIA [None]
  - DIARRHOEA [None]
  - DUODENAL ULCER [None]
  - GASTRIC ULCER [None]
  - MELAENA [None]
  - OESOPHAGEAL ULCER [None]
